FAERS Safety Report 18815833 (Version 1)
Quarter: 2021Q1

REPORT INFORMATION
  Report Type: Spontaneous
  Country: US (occurrence: US)
  Receive Date: 20210130
  Receipt Date: 20210130
  Transmission Date: 20210419
  Serious: Yes (Hospitalization)
  Sender: FDA-Public Use
  Company Number: None

PATIENT
  Age: 69 Year
  Sex: Male
  Weight: 98.43 kg

DRUGS (1)
  1. LISINOPRIL (LISINOPRIL 20MG TAB) [Suspect]
     Active Substance: LISINOPRIL

REACTIONS (6)
  - Chronic obstructive pulmonary disease [None]
  - Pneumonia [None]
  - International normalised ratio increased [None]
  - Angioedema [None]
  - Cardiac failure [None]
  - Acute respiratory failure [None]

NARRATIVE: CASE EVENT DATE: 20200805
